FAERS Safety Report 16681973 (Version 1)
Quarter: 2019Q3

REPORT INFORMATION
  Report Type: Report from Study
  Country: US (occurrence: US)
  Receive Date: 20190808
  Receipt Date: 20190808
  Transmission Date: 20191004
  Serious: No
  Sender: FDA-Public Use
  Company Number: PHEH2019US032422

PATIENT
  Sex: Female

DRUGS (1)
  1. ENTRESTO [Suspect]
     Active Substance: SACUBITRIL\VALSARTAN
     Indication: PRODUCT USED FOR UNKNOWN INDICATION
     Dosage: UNK
     Route: 048

REACTIONS (7)
  - Blood potassium decreased [Unknown]
  - Vision blurred [Unknown]
  - Hypotension [Unknown]
  - Muscle spasms [Unknown]
  - Hypersomnia [Unknown]
  - Fatigue [Unknown]
  - Heart rate increased [Unknown]
